FAERS Safety Report 5740486-3 (Version None)
Quarter: 2008Q2

REPORT INFORMATION
  Report Type: 
  Country: None (occurrence: None)
  Receive Date: 20080516
  Receipt Date: 20080424
  Transmission Date: 20081010
  Serious: Yes (Other)
  Sender: FDA-Public Use
  Company Number: US-NOVOPROD-274624

PATIENT
  Age: 64 Year
  Sex: Female

DRUGS (3)
  1. ACTIVELLA [Suspect]
     Indication: MENOPAUSAL SYMPTOMS
     Dosage: 1 TAB, QD
     Route: 048
     Dates: start: 20020101, end: 20040101
  2. ACTIVELLA [Suspect]
     Dosage: 1 TAB ONE DAY, 0.5 TAB THE NEXT DAY
     Route: 048
     Dates: start: 20050101, end: 20080301
  3. ACTIVELLA [Suspect]
     Dosage: .5 TAB, UNK
     Route: 048
     Dates: start: 20080301

REACTIONS (1)
  - BENIGN BREAST NEOPLASM [None]
